FAERS Safety Report 6757822-1 (Version None)
Quarter: 2010Q2

REPORT INFORMATION
  Report Type: 
  Country: None (occurrence: None)
  Receive Date: 20100607
  Receipt Date: 20100525
  Transmission Date: 20101027
  Serious: Yes (Hospitalization)
  Sender: FDA-Public Use
  Company Number: PHHY2010US34134

PATIENT
  Sex: Female
  Weight: 65 kg

DRUGS (7)
  1. EXJADE [Suspect]
     Indication: NEOPLASM
     Dosage: 1250 MG, DAILY
     Route: 048
     Dates: start: 20100519
  2. LORAZEPAM [Concomitant]
  3. VALTREX [Concomitant]
  4. POTASSIUM [Concomitant]
  5. DESOGEN [Concomitant]
  6. PROCRIT [Concomitant]
  7. NEUPOGEN [Concomitant]

REACTIONS (3)
  - BIOPSY BONE MARROW [None]
  - NAUSEA [None]
  - VOMITING [None]
